FAERS Safety Report 9439078 (Version 1)
Quarter: 2013Q3

REPORT INFORMATION
  Report Type: Spontaneous
  Country: ES (occurrence: ES)
  Receive Date: 20130802
  Receipt Date: 20130802
  Transmission Date: 20140515
  Serious: Yes (Hospitalization)
  Sender: FDA-Public Use
  Company Number: ES-ROCHE-1255645

PATIENT
  Age: 55 Year
  Sex: Female

DRUGS (2)
  1. RIVOTRIL [Suspect]
     Indication: BIPOLAR DISORDER
     Route: 048
     Dates: start: 20130315
  2. LORMETAZEPAM [Suspect]
     Indication: BIPOLAR DISORDER
     Route: 048
     Dates: start: 20130315

REACTIONS (2)
  - Confusional state [Recovered/Resolved]
  - Toxicity to various agents [Recovered/Resolved]
